FAERS Safety Report 6697768-0 (Version None)
Quarter: 2010Q2

REPORT INFORMATION
  Report Type: 
  Country: None (occurrence: None)
  Receive Date: 20100423
  Receipt Date: 20100420
  Transmission Date: 20101027
  Serious: Yes (Hospitalization, Other)
  Sender: FDA-Public Use
  Company Number: SPV1-2010-00754

PATIENT
  Age: 69 Year
  Sex: Female

DRUGS (7)
  1. FOSRENOL [Suspect]
     Indication: HYPERPHOSPHATAEMIA
     Dosage: 250 MG, ORAL
     Route: 048
     Dates: start: 20090610
  2. CALTAN (CALCIUM CARBONATE) [Concomitant]
  3. ALFAROL (ALFACALCIDOL) [Concomitant]
  4. LOSARTAN POTASSIUM [Concomitant]
  5. CLONAZEPAM [Concomitant]
  6. SHAKUYAKUKANZOUTOU (HERVAL EXTRACT NOS) [Concomitant]
  7. PROTECTION (LAFUTIDINE) [Concomitant]

REACTIONS (2)
  - DUODENAL ULCER [None]
  - SHUNT ANEURYSM [None]
